FAERS Safety Report 17980749 (Version 1)
Quarter: 2020Q3

REPORT INFORMATION
  Report Type: Spontaneous
  Country: US (occurrence: US)
  Receive Date: 20200704
  Receipt Date: 20200704
  Transmission Date: 20201103
  Serious: Yes (Hospitalization, Other)
  Sender: FDA-Public Use
  Company Number: US-HIKMA PHARMACEUTICALS USA INC.-US-H14001-20-03118

PATIENT
  Sex: Male

DRUGS (3)
  1. AVASTIN [Suspect]
     Active Substance: BEVACIZUMAB
     Indication: CHEMOTHERAPY
     Route: 065
     Dates: start: 202003
  2. SOMATULINE [Suspect]
     Active Substance: LANREOTIDE ACETATE
     Indication: PRODUCT USED FOR UNKNOWN INDICATION
     Route: 065
  3. VINBLASTINE [Suspect]
     Active Substance: VINBLASTINE
     Indication: CHEMOTHERAPY
     Route: 065
     Dates: start: 202003

REACTIONS (8)
  - Neutropenia [Unknown]
  - Visual impairment [Unknown]
  - Diarrhoea [Unknown]
  - Injection site pain [Unknown]
  - Drug ineffective [Unknown]
  - Constipation [Unknown]
  - Blood growth hormone increased [Unknown]
  - Pain [Unknown]
